FAERS Safety Report 21356478 (Version 1)
Quarter: 2022Q3

REPORT INFORMATION
  Report Type: Spontaneous
  Country: DK (occurrence: DK)
  Receive Date: 20220920
  Receipt Date: 20220920
  Transmission Date: 20221027
  Serious: Yes (Hospitalization, Other)
  Sender: FDA-Public Use
  Company Number: None

PATIENT
  Age: 49 Year
  Sex: Male

DRUGS (6)
  1. ADRIAMYCIN [Suspect]
     Active Substance: DOXORUBICIN HYDROCHLORIDE
     Indication: Diffuse large B-cell lymphoma
     Dosage: DOSAGE: UNKNOWN, STRENGTH: UNKNOWN.
     Dates: start: 20200507, end: 20200721
  2. RITUXIMAB [Suspect]
     Active Substance: RITUXIMAB
     Indication: Diffuse large B-cell lymphoma
     Dosage: UNK
     Dates: start: 20200507, end: 20200721
  3. RITUXIMAB [Suspect]
     Active Substance: RITUXIMAB
     Dosage: UNK
     Dates: start: 20200507, end: 20200721
  4. PREDNISOLONE [Suspect]
     Active Substance: PREDNISOLONE
     Indication: Diffuse large B-cell lymphoma
     Dosage: DOSAGE: UNKNOWN, STRENGTH: UNKNOWN.
     Dates: start: 20200507, end: 20200721
  5. ONCOVIN [Suspect]
     Active Substance: VINCRISTINE SULFATE
     Indication: Diffuse large B-cell lymphoma
     Dosage: DOSAGE: UNKNOWN
     Dates: start: 20200507, end: 20200721
  6. CYCLOPHOSPHAMIDE [Suspect]
     Active Substance: CYCLOPHOSPHAMIDE
     Indication: Diffuse large B-cell lymphoma
     Dosage: DOSAGE: UNKNOWN, STRENGTH: UNKNOWN.
     Dates: start: 20200507, end: 20200721

REACTIONS (9)
  - Cardiomyopathy [Not Recovered/Not Resolved]
  - Pulmonary oedema [Recovered/Resolved]
  - Pulmonary embolism [Unknown]
  - Cardiac failure [Not Recovered/Not Resolved]
  - Oedema [Recovered/Resolved]
  - Tenderness [Unknown]
  - Dyspnoea [Unknown]
  - Insomnia [Unknown]
  - Cough [Unknown]

NARRATIVE: CASE EVENT DATE: 20201101
